FAERS Safety Report 19570397 (Version 1)
Quarter: 2021Q3

REPORT INFORMATION
  Report Type: Spontaneous
  Country: CN (occurrence: CN)
  Receive Date: 20210716
  Receipt Date: 20210716
  Transmission Date: 20211014
  Serious: Yes (Other)
  Sender: FDA-Public Use
  Company Number: CN-ASTRAZENECA-2021A074010

PATIENT
  Age: 79 Year
  Sex: Male

DRUGS (1)
  1. TAGRISSO [Suspect]
     Active Substance: OSIMERTINIB
     Dosage: 40.0MG UNKNOWN
     Route: 048
     Dates: start: 202001

REACTIONS (4)
  - Pulmonary mass [Unknown]
  - Decreased appetite [Unknown]
  - Rash [Unknown]
  - Malignant neoplasm progression [Unknown]
